FAERS Safety Report 18212728 (Version 2)
Quarter: 2020Q3

REPORT INFORMATION
  Report Type: Spontaneous
  Country: ES (occurrence: ES)
  Receive Date: 20200831
  Receipt Date: 20200908
  Transmission Date: 20201103
  Serious: Yes (Life-Threatening, Hospitalization)
  Sender: FDA-Public Use
  Company Number: ES-ASTRAZENECA-2020SF08886

PATIENT
  Age: 48 Year
  Sex: Female

DRUGS (8)
  1. IMATINIB. [Interacting]
     Active Substance: IMATINIB MESYLATE
     Indication: CHRONIC MYELOID LEUKAEMIA
     Dosage: 300.0MG UNKNOWN
     Route: 065
  2. INSULIN GLARGINE [Concomitant]
     Active Substance: INSULIN GLARGINE
     Dosage: 28 U DAILY
     Route: 065
  3. BISOPROLOL [Concomitant]
     Active Substance: BISOPROLOL
     Dosage: 2.5 MG DAILY
     Route: 065
  4. IMATINIB. [Interacting]
     Active Substance: IMATINIB MESYLATE
     Indication: CHRONIC MYELOID LEUKAEMIA
     Dosage: 400.0MG UNKNOWN
     Route: 065
  5. IMATINIB. [Interacting]
     Active Substance: IMATINIB MESYLATE
     Indication: CHRONIC MYELOID LEUKAEMIA
     Route: 065
  6. GEFITINIB. [Suspect]
     Active Substance: GEFITINIB
     Indication: LUNG ADENOCARCINOMA STAGE IV
     Route: 048
  7. REPAGLINIDE. [Concomitant]
     Active Substance: REPAGLINIDE
     Dosage: EVERY 8 HOURS
     Route: 065
  8. BEMIPARIN [Concomitant]
     Active Substance: BEMIPARIN
     Dosage: 5000 U DAILY
     Route: 065

REACTIONS (5)
  - Hepatic function abnormal [Recovering/Resolving]
  - Gastrointestinal toxicity [Unknown]
  - Asthenia [Unknown]
  - Potentiating drug interaction [Recovering/Resolving]
  - Pancreatitis acute [Recovering/Resolving]
